FAERS Safety Report 7299482-X (Version None)
Quarter: 2011Q1

REPORT INFORMATION
  Report Type: 
  Country: None (occurrence: None)
  Receive Date: 20110217
  Receipt Date: 20110209
  Transmission Date: 20110831
  Serious: Yes (Hospitalization)
  Sender: FDA-Public Use
  Company Number: US-B.I. PHARMACEUTICALS,INC./RIDGEFIELD-2010-BP-13726BP

PATIENT
  Age: 84 Year
  Sex: Female

DRUGS (9)
  1. MULTAQ [Concomitant]
     Indication: ANTICOAGULANT THERAPY
     Dosage: 800 MG
     Route: 048
     Dates: start: 20080101
  2. LEVOTHROID [Concomitant]
  3. BUMETANIDE [Concomitant]
     Indication: DIURETIC THERAPY
     Route: 048
  4. PRADAXA [Suspect]
     Indication: ATRIAL FIBRILLATION
     Dosage: 300 MG
     Route: 048
     Dates: start: 20101125, end: 20101127
  5. PRADAXA [Suspect]
     Indication: ANTICOAGULANT THERAPY
  6. PLAVIX [Concomitant]
     Indication: CARDIAC DISORDER
     Dosage: 75 MG
     Route: 048
     Dates: start: 20030101
  7. PROTONIX [Concomitant]
     Indication: CARDIAC DISORDER
     Dosage: 40 MG
     Route: 048
     Dates: start: 20080101
  8. POTASSIUM [Concomitant]
  9. FLAGYL [Concomitant]

REACTIONS (9)
  - RECTAL HAEMORRHAGE [None]
  - CEREBROVASCULAR ACCIDENT [None]
  - HYPOAESTHESIA [None]
  - CARDIAC DISORDER [None]
  - DIARRHOEA HAEMORRHAGIC [None]
  - FAECES DISCOLOURED [None]
  - HAEMATOCHEZIA [None]
  - MELAENA [None]
  - REFUSAL OF TREATMENT BY PATIENT [None]
